FAERS Safety Report 9557357 (Version 1)
Quarter: 2013Q3

REPORT INFORMATION
  Report Type: Spontaneous
  Country: US (occurrence: None)
  Receive Date: 20130724
  Receipt Date: 20130724
  Transmission Date: 20140515
  Serious: Yes (Other)
  Sender: FDA-Public Use
  Company Number: PHEH2012US011434

PATIENT
  Age: 67 Year
  Sex: Female
  Weight: 54.9 kg

DRUGS (4)
  1. RECLAST [Suspect]
     Indication: OSTEOPOROSIS
     Route: 042
     Dates: start: 20120515
  2. CALCIUM W/VITAMIN D NOS (CALCIUM, VITAMIN D NOS) [Concomitant]
  3. RANITIDINE (RANITIDINE) [Concomitant]
  4. TIMOLOL (TIMOLOL) [Concomitant]

REACTIONS (6)
  - Iritis [None]
  - Diarrhoea [None]
  - Pain [None]
  - Ocular hyperaemia [None]
  - Eye pain [None]
  - Vision blurred [None]
